FAERS Safety Report 6880832-0 (Version None)
Quarter: 2010Q3

REPORT INFORMATION
  Report Type: 
  Country: None (occurrence: None)
  Receive Date: 20100728
  Receipt Date: 20100722
  Transmission Date: 20110219
  Serious: Yes (Life-Threatening, Hospitalization)
  Sender: FDA-Public Use
  Company Number: JP-ELI_LILLY_AND_COMPANY-JP201007005117

PATIENT
  Age: 82 Year
  Sex: Female

DRUGS (1)
  1. GEMZAR [Suspect]
     Indication: PANCREATIC CARCINOMA
     Dosage: 1200 MG, OTHER
     Route: 042
     Dates: start: 20100420, end: 20100621

REACTIONS (2)
  - CHOLANGITIS [None]
  - INTERSTITIAL LUNG DISEASE [None]
